FAERS Safety Report 6835068-6 (Version None)
Quarter: 2010Q3

REPORT INFORMATION
  Report Type: 
  Country: None (occurrence: None)
  Receive Date: 20100713
  Receipt Date: 20100630
  Transmission Date: 20110219
  Serious: No
  Sender: FDA-Public Use
  Company Number: US-BIOGENIDEC-2010BI022722

PATIENT
  Age: 57 Year
  Sex: Male

DRUGS (1)
  1. TYSABRI [Suspect]
     Indication: MULTIPLE SCLEROSIS
     Route: 042
     Dates: start: 20090707

REACTIONS (9)
  - ANXIETY [None]
  - DENTAL CARE [None]
  - DEPRESSED MOOD [None]
  - DYSPNOEA [None]
  - FEAR [None]
  - GAIT DISTURBANCE [None]
  - HYPERVENTILATION [None]
  - MUSCULAR WEAKNESS [None]
  - TREMOR [None]
